FAERS Safety Report 20901490 (Version 2)
Quarter: 2022Q2

REPORT INFORMATION
  Report Type: Report from Study
  Country: US (occurrence: None)
  Receive Date: 20220601
  Receipt Date: 20220617
  Transmission Date: 20220721
  Serious: Yes (Other)
  Sender: FDA-Public Use
  Company Number: US-ROCHE-3086401

PATIENT

DRUGS (3)
  1. TRASTUZUMAB [Suspect]
     Active Substance: TRASTUZUMAB
     Indication: Plasma cell myeloma
     Dosage: MOST RECENT DOSE ADMINISTERED ON: 12/APR/2022?MOST RECENT DOSE ADMINISTERED ON: 19/MAY/2022
     Route: 058
     Dates: start: 20220331
  2. TUCATINIB [Suspect]
     Active Substance: TUCATINIB
     Indication: Plasma cell myeloma
     Dosage: MOST RECENT DOSE ADMINISTERED ON 12/APR/2022?MOST RECENT DOSE (500.0 MG) ADMINISTERED ON: 19/MAY/202
     Route: 048
     Dates: start: 20220331
  3. TUCATINIB [Suspect]
     Active Substance: TUCATINIB
     Dosage: DATE OF MOST RECENT DOSE OF STUDY DRUG:19/MAY/2022
     Route: 048
     Dates: start: 20220331

REACTIONS (3)
  - Rash maculo-papular [Not Recovered/Not Resolved]
  - Aspartate aminotransferase increased [Not Recovered/Not Resolved]
  - Alanine aminotransferase increased [Not Recovered/Not Resolved]

NARRATIVE: CASE EVENT DATE: 20220413
